FAERS Safety Report 4815754-X (Version None)
Quarter: 2005Q4

REPORT INFORMATION
  Report Type: 
  Country: None (occurrence: None)
  Receive Date: 20051027
  Receipt Date: 20051011
  Transmission Date: 20060501
  Serious: Yes (Hospitalization)
  Sender: FDA-Public Use
  Company Number: DSA_27289_2005

PATIENT
  Age: 46 Year
  Sex: Female

DRUGS (4)
  1. TAVOR [Suspect]
     Dates: start: 20051010, end: 20051010
  2. CITALOPRAM [Suspect]
     Dates: start: 20051010, end: 20051010
  3. DOMINAL [Suspect]
     Dates: start: 20051010, end: 20051010
  4. TAXILAN [Suspect]
     Dates: start: 20051010, end: 20051010

REACTIONS (3)
  - FATIGUE [None]
  - MULTIPLE DRUG OVERDOSE INTENTIONAL [None]
  - TACHYCARDIA [None]
